FAERS Safety Report 9428745 (Version 1)
Quarter: 2013Q3

REPORT INFORMATION
  Report Type: Spontaneous
  Country: US (occurrence: US)
  Receive Date: 20130730
  Receipt Date: 20130730
  Transmission Date: 20140515
  Serious: No
  Sender: FDA-Public Use
  Company Number: US-ABBOTT-12P-163-1028738-00

PATIENT
  Sex: Male
  Weight: 97.61 kg

DRUGS (9)
  1. NIASPAN (COATED) [Suspect]
     Indication: BLOOD CHOLESTEROL INCREASED
     Dates: start: 201209
  2. NIASPAN (COATED) [Suspect]
     Dates: start: 2010, end: 201209
  3. SYNTHROID [Concomitant]
     Indication: HYPOTHYROIDISM
  4. HYDROCHLOROTHIAZIDE [Concomitant]
     Indication: HYPERTENSION
  5. METFORMIN [Concomitant]
     Indication: DIABETES MELLITUS
  6. GLYBERIDE [Concomitant]
     Indication: DIABETES MELLITUS
  7. ATORVASTATIN [Concomitant]
     Indication: BLOOD CHOLESTEROL INCREASED
  8. LOSARTAN POTASSIUM [Concomitant]
     Indication: PRODUCT USED FOR UNKNOWN INDICATION
  9. FLONASE [Concomitant]
     Indication: HYPERSENSITIVITY

REACTIONS (4)
  - Flushing [Not Recovered/Not Resolved]
  - Paraesthesia [Not Recovered/Not Resolved]
  - Flushing [Not Recovered/Not Resolved]
  - Paraesthesia [Not Recovered/Not Resolved]
